FAERS Safety Report 6135505-9 (Version None)
Quarter: 2009Q1

REPORT INFORMATION
  Report Type: 
  Country: None (occurrence: None)
  Receive Date: 20090327
  Receipt Date: 20090319
  Transmission Date: 20090719
  Serious: Yes (Hospitalization)
  Sender: FDA-Public Use
  Company Number: B0561729A

PATIENT
  Age: 79 Year
  Sex: Female

DRUGS (8)
  1. ARIXTRA [Suspect]
     Indication: THROMBOSIS PROPHYLAXIS
     Dosage: 1.5MG PER DAY
     Route: 058
     Dates: start: 20090201, end: 20090207
  2. ASPIRIN [Concomitant]
  3. IFENPRODIL [Concomitant]
  4. TARTRATE [Concomitant]
  5. PRAVASTATIN [Concomitant]
  6. SPIRONOLACTONE [Concomitant]
  7. FAMOTIDINE [Concomitant]
  8. IMIPRAMINE HCL [Concomitant]

REACTIONS (4)
  - HAEMOGLOBIN DECREASED [None]
  - POST PROCEDURAL HAEMATOMA [None]
  - RED BLOOD CELL COUNT DECREASED [None]
  - WHITE BLOOD CELL COUNT INCREASED [None]
